FAERS Safety Report 4519867-1 (Version None)
Quarter: 2004Q4

REPORT INFORMATION
  Report Type: 
  Country: None (occurrence: None)
  Receive Date: 20041202
  Receipt Date: 20041202
  Transmission Date: 20050328
  Serious: Yes (Hospitalization)
  Sender: FDA-Public Use
  Company Number: None

PATIENT
  Age: 30 Year
  Sex: Female
  Weight: 68.4 kg

DRUGS (15)
  1. CAPECITABINE [Suspect]
     Indication: ADENOID CYSTIC CARCINOMA
     Dosage: 3000 MG  DIVIDED BID  ORAL
     Route: 048
     Dates: start: 20041021, end: 20041124
  2. CAPECITABINE [Suspect]
     Indication: SALIVARY GLAND NEOPLASM
     Dosage: 3000 MG  DIVIDED BID  ORAL
     Route: 048
     Dates: start: 20041021, end: 20041124
  3. OXALIPLATIN [Suspect]
     Indication: ADENOID CYSTIC CARCINOMA
     Dosage: 228 MG  EVERY 3 WEEKS  INTRAVENOUS
     Route: 042
     Dates: start: 20041021, end: 20041111
  4. OXALIPLATIN [Suspect]
     Indication: SALIVARY GLAND NEOPLASM
     Dosage: 228 MG  EVERY 3 WEEKS  INTRAVENOUS
     Route: 042
     Dates: start: 20041021, end: 20041111
  5. ATIVAN [Concomitant]
  6. BACLOFEN [Concomitant]
  7. DILAUDID [Concomitant]
  8. ILOTYCIN [Concomitant]
  9. NEURONTIN [Concomitant]
  10. PAMELOR [Concomitant]
  11. REGLAN [Concomitant]
  12. VALIUM [Concomitant]
  13. ZANAFLEX [Concomitant]
  14. ZOMETA [Concomitant]
  15. DARBEPOETIN [Concomitant]

REACTIONS (1)
  - HYPOAESTHESIA [None]
